FAERS Safety Report 25890307 (Version 1)
Quarter: 2025Q4

REPORT INFORMATION
  Report Type: Spontaneous
  Country: EU (occurrence: EU)
  Receive Date: 20251007
  Receipt Date: 20251007
  Transmission Date: 20260118
  Serious: Yes (Hospitalization)
  Sender: SANDOZ
  Company Number: None

PATIENT
  Age: 61 Year
  Sex: Female
  Weight: 90 kg

DRUGS (4)
  1. FLUCONAZOLE [Suspect]
     Active Substance: FLUCONAZOLE
     Indication: Infection
     Dosage: 400 MG, QD
     Route: 042
     Dates: start: 20250826, end: 20250908
  2. MEROPENEM ANHYDROUS [Suspect]
     Active Substance: MEROPENEM ANHYDROUS
     Indication: Infection
     Dosage: 0.8 G, Q8H
     Route: 042
     Dates: start: 20250820, end: 20250908
  3. ACETAMINOPHEN [Suspect]
     Active Substance: ACETAMINOPHEN
     Indication: Pain
     Dosage: 4 G, QD
     Route: 048
     Dates: start: 20250826, end: 20250901
  4. VANCOMYCIN [Suspect]
     Active Substance: VANCOMYCIN
     Indication: Infection
     Dosage: 1.25 G, Q24H
     Route: 042
     Dates: start: 202508, end: 20250908

REACTIONS (3)
  - Hepatic cytolysis [Recovering/Resolving]
  - Jaundice cholestatic [Recovering/Resolving]
  - Condition aggravated [Recovering/Resolving]

NARRATIVE: CASE EVENT DATE: 20250901
